FAERS Safety Report 8161102-X (Version None)
Quarter: 2012Q1

REPORT INFORMATION
  Report Type: 
  Country: None (occurrence: None)
  Receive Date: 20120224
  Receipt Date: 20120220
  Transmission Date: 20120608
  Serious: No
  Sender: FDA-Public Use
  Company Number: US-PFIZER INC-2012044919

PATIENT
  Sex: Male
  Weight: 24 kg

DRUGS (7)
  1. GENOTROPIN [Suspect]
     Indication: GROWTH HORMONE DEFICIENCY
     Dosage: 12 MG, 1X/DAY
     Route: 058
     Dates: start: 20111101
  2. FLUTICASONE [Concomitant]
     Indication: ASTHMA
     Dosage: UNK
     Route: 045
  3. ALBUTEROL [Concomitant]
     Dosage: UNK
  4. CETIRIZINE [Concomitant]
     Indication: SINUS DISORDER
     Dosage: UNK
  5. PEPCID [Concomitant]
     Indication: GASTROOESOPHAGEAL REFLUX DISEASE
     Dosage: UNK
  6. SINGULAIR [Concomitant]
     Indication: SINUS DISORDER
     Dosage: UNK
  7. ALBUTEROL [Concomitant]
     Indication: ASTHMA
     Dosage: UNK

REACTIONS (1)
  - RASH [None]
